FAERS Safety Report 7152524-4 (Version None)
Quarter: 2010Q4

REPORT INFORMATION
  Report Type: 
  Country: None (occurrence: None)
  Receive Date: 20101213
  Receipt Date: 20101202
  Transmission Date: 20110411
  Serious: Yes (Other)
  Sender: FDA-Public Use
  Company Number: JP-JNJFOC-20101202303

PATIENT
  Age: 56 Year
  Sex: Female

DRUGS (5)
  1. RISPERDAL [Suspect]
     Indication: ILL-DEFINED DISORDER
     Route: 048
  2. LEVOMEPROMAZINE MALEATE [Concomitant]
     Route: 065
  3. ARIPIPRAZOLE [Concomitant]
     Route: 048
  4. PEROSPIRONE HYDROCHLORIDE [Concomitant]
     Route: 048
  5. UNKNOWN MEDICATION [Concomitant]
     Route: 065

REACTIONS (8)
  - ATAXIA [None]
  - BLOOD SODIUM DECREASED [None]
  - DIZZINESS [None]
  - GENERALISED OEDEMA [None]
  - POLYDIPSIA [None]
  - TREMOR [None]
  - WATER INTOXICATION [None]
  - WEIGHT INCREASED [None]
